FAERS Safety Report 19352767 (Version 1)
Quarter: 2021Q2

REPORT INFORMATION
  Report Type: Report from Study
  Country: US (occurrence: US)
  Receive Date: 20210601
  Receipt Date: 20210601
  Transmission Date: 20210717
  Serious: Yes (Hospitalization, Other)
  Sender: FDA-Public Use
  Company Number: US-SHIRE-US202031703

PATIENT
  Age: 67 Year
  Sex: Female

DRUGS (1)
  1. HUMAN NORMAL IMMUNOGLOBULIN; LIQUID [Suspect]
     Active Substance: HUMAN IMMUNOGLOBULIN G
     Indication: PRIMARY IMMUNODEFICIENCY SYNDROME
     Dosage: 70 GRAM, 1X A MONTH
     Route: 042

REACTIONS (10)
  - Sepsis [Unknown]
  - Nephrolithiasis [Unknown]
  - Selective IgA immunodeficiency [Unknown]
  - Blood pressure increased [Unknown]
  - Pain [Unknown]
  - Infusion related reaction [Unknown]
  - Sinusitis [Not Recovered/Not Resolved]
  - Arthralgia [Unknown]
  - Renal failure [Unknown]
  - Epistaxis [Unknown]

NARRATIVE: CASE EVENT DATE: 202005
